FAERS Safety Report 4539699-8 (Version None)
Quarter: 2004Q4

REPORT INFORMATION
  Report Type: 
  Country: None (occurrence: None)
  Receive Date: 20041223
  Receipt Date: 20041210
  Transmission Date: 20050328
  Serious: Yes (Other)
  Sender: FDA-Public Use
  Company Number: HQWYE890310DEC04

PATIENT
  Age: 46 Year
  Sex: Female

DRUGS (6)
  1. TAZOCIN (PIPERACILLIN/TAZOBACTAM, INJECTION) [Suspect]
     Indication: PYELONEPHRITIS ACUTE
     Dosage: 2.5 G 2X PER 1 DAY; 2.5 G 3X PER 1 DAY, 2.5 G 1X PER 1 DAY
     Route: 041
     Dates: start: 20040911, end: 20040911
  2. TAZOCIN (PIPERACILLIN/TAZOBACTAM, INJECTION) [Suspect]
     Indication: SEPSIS
     Dosage: 2.5 G 2X PER 1 DAY; 2.5 G 3X PER 1 DAY, 2.5 G 1X PER 1 DAY
     Route: 041
     Dates: start: 20040911, end: 20040911
  3. TAZOCIN (PIPERACILLIN/TAZOBACTAM, INJECTION) [Suspect]
     Indication: PYELONEPHRITIS ACUTE
     Dosage: 2.5 G 2X PER 1 DAY; 2.5 G 3X PER 1 DAY, 2.5 G 1X PER 1 DAY
     Route: 041
     Dates: start: 20040912, end: 20040912
  4. TAZOCIN (PIPERACILLIN/TAZOBACTAM, INJECTION) [Suspect]
     Indication: SEPSIS
     Dosage: 2.5 G 2X PER 1 DAY; 2.5 G 3X PER 1 DAY, 2.5 G 1X PER 1 DAY
     Route: 041
     Dates: start: 20040912, end: 20040912
  5. TAZOCIN (PIPERACILLIN/TAZOBACTAM, INJECTION) [Suspect]
     Indication: PYELONEPHRITIS ACUTE
     Dosage: 2.5 G 2X PER 1 DAY; 2.5 G 3X PER 1 DAY, 2.5 G 1X PER 1 DAY
     Route: 041
     Dates: start: 20040913, end: 20040913
  6. TAZOCIN (PIPERACILLIN/TAZOBACTAM, INJECTION) [Suspect]
     Indication: SEPSIS
     Dosage: 2.5 G 2X PER 1 DAY; 2.5 G 3X PER 1 DAY, 2.5 G 1X PER 1 DAY
     Route: 041
     Dates: start: 20040913, end: 20040913

REACTIONS (6)
  - ALANINE AMINOTRANSFERASE INCREASED [None]
  - ASPARTATE AMINOTRANSFERASE INCREASED [None]
  - BLOOD ALKALINE PHOSPHATASE INCREASED [None]
  - BLOOD LACTATE DEHYDROGENASE INCREASED [None]
  - DIARRHOEA [None]
  - FATIGUE [None]
